FAERS Safety Report 6933704-7 (Version None)
Quarter: 2010Q3

REPORT INFORMATION
  Report Type: 
  Country: None (occurrence: None)
  Receive Date: 20100820
  Receipt Date: 20100811
  Transmission Date: 20110219
  Serious: Yes (Hospitalization)
  Sender: FDA-Public Use
  Company Number: BR-ABBOTT-10P-020-0663747-00

PATIENT
  Sex: Female
  Weight: 52 kg

DRUGS (2)
  1. HUMIRA [Suspect]
     Indication: RHEUMATOID ARTHRITIS
     Route: 058
  2. UNKNOWN THERAPIES [Concomitant]
     Indication: RHEUMATOID ARTHRITIS

REACTIONS (4)
  - ABDOMINAL MASS [None]
  - CHOLELITHIASIS [None]
  - LOCALISED INTRAABDOMINAL FLUID COLLECTION [None]
  - PAIN IN EXTREMITY [None]
